FAERS Safety Report 4402123-X (Version None)
Quarter: 2004Q3

REPORT INFORMATION
  Report Type: 
  Country: None (occurrence: None)
  Receive Date: 20040719
  Receipt Date: 20040719
  Transmission Date: 20050211
  Serious: Yes (Life-Threatening)
  Sender: FDA-Public Use
  Company Number: None

PATIENT
  Age: 59 Year
  Sex: Female
  Weight: 71.6683 kg

DRUGS (16)
  1. ACTONEL [Suspect]
     Indication: OSTEOPENIA
     Dosage: ONCE WKLY ORAL
     Route: 048
     Dates: start: 20040603, end: 20040624
  2. NORTREL 7/7/7 [Concomitant]
  3. NOVOLIN R AND N [Concomitant]
  4. METHOCARBAMOL [Concomitant]
  5. PREDNISONE [Concomitant]
  6. NITROGLYCERIN [Concomitant]
  7. DICLOFENAC [Concomitant]
  8. POTASSIUM [Concomitant]
  9. LEVOXYL [Concomitant]
  10. TRIAZOLAM [Concomitant]
  11. ZYRTEC [Concomitant]
  12. NORVASC [Concomitant]
  13. FUROSEMIDE [Concomitant]
  14. ADVAIR DISKUS 100/50 [Concomitant]
  15. ENALAPRIL MALEATE [Concomitant]
  16. ALPRAZOLAM [Concomitant]

REACTIONS (7)
  - DISCOMFORT [None]
  - GENITAL DISORDER FEMALE [None]
  - INFLAMMATION [None]
  - MUSCLE SPASMS [None]
  - RENAL IMPAIRMENT [None]
  - URINARY TRACT DISORDER [None]
  - URINE OUTPUT DECREASED [None]
